FAERS Safety Report 11133694 (Version 3)
Quarter: 2015Q3

REPORT INFORMATION
  Report Type: Spontaneous
  Country: GR (occurrence: GR)
  Receive Date: 20150524
  Receipt Date: 20150707
  Transmission Date: 20151125
  Serious: Yes (Hospitalization, Other)
  Sender: FDA-Public Use
  Company Number: GR-AMGEN-GRCSP2015049099

PATIENT
  Sex: Female

DRUGS (2)
  1. PROLIA [Suspect]
     Active Substance: DENOSUMAB
     Indication: OSTEOPOROSIS
     Dosage: UNK
     Route: 065
     Dates: start: 201206
  2. SEROPRAM [Concomitant]
     Active Substance: CITALOPRAM HYDROBROMIDE

REACTIONS (20)
  - Fibrin D dimer increased [Unknown]
  - Cough [Recovered/Resolved]
  - Epistaxis [Unknown]
  - Atrial fibrillation [Unknown]
  - Panic reaction [Unknown]
  - Pyrexia [Unknown]
  - Insomnia [Unknown]
  - Troponin increased [Unknown]
  - Extrasystoles [Unknown]
  - Bowel movement irregularity [Unknown]
  - Hypertensive crisis [Unknown]
  - Oedema peripheral [Recovered/Resolved]
  - Pain [Unknown]
  - Eosinophilia [Unknown]
  - Decreased appetite [Unknown]
  - Irritability [Unknown]
  - Malaise [Unknown]
  - Diarrhoea [Unknown]
  - Peripheral venous disease [Unknown]
  - Injection site pain [Recovered/Resolved]

NARRATIVE: CASE EVENT DATE: 201207
